FAERS Safety Report 10211020 (Version 1)
Quarter: 2014Q2

REPORT INFORMATION
  Report Type: Spontaneous
  Country: US (occurrence: None)
  Receive Date: 20140530
  Receipt Date: 20140530
  Transmission Date: 20141212
  Serious: Yes (Other)
  Sender: FDA-Public Use
  Company Number: None

PATIENT
  Age: 61 Year
  Sex: Male

DRUGS (2)
  1. NEORAL [Suspect]
     Indication: RENAL TRANSPLANT
     Dosage: NEORAL 25 MG, 100 MG (TOTAL 150 MG), DAILY, PO?
     Route: 048
     Dates: start: 20140305
  2. MYCOPHENOLATE [Suspect]
     Indication: RENAL TRANSPLANT
     Dosage: 750 MG, BID, PO?
     Route: 048
     Dates: start: 20140305

REACTIONS (1)
  - Pyrexia [None]
